FAERS Safety Report 5288648-6 (Version None)
Quarter: 2007Q1

REPORT INFORMATION
  Report Type: 
  Country: None (occurrence: None)
  Receive Date: 20070330
  Receipt Date: 20070314
  Transmission Date: 20070707
  Serious: Yes (Hospitalization, Other)
  Sender: FDA-Public Use
  Company Number: 15972

PATIENT
  Age: 22 Year
  Sex: Female

DRUGS (1)
  1. HALOPERIDOL [Suspect]
     Indication: AGITATION
     Dosage: 5 MG IM
     Route: 030

REACTIONS (6)
  - CATATONIA [None]
  - DRUG EXPOSURE DURING PREGNANCY [None]
  - NEUROLEPTIC MALIGNANT SYNDROME [None]
  - NO THERAPEUTIC RESPONSE [None]
  - RENAL FAILURE ACUTE [None]
  - SCHIZOPHRENIFORM DISORDER [None]
